FAERS Safety Report 25091113 (Version 1)
Quarter: 2025Q1

REPORT INFORMATION
  Report Type: Spontaneous
  Country: US (occurrence: US)
  Receive Date: 20250318
  Receipt Date: 20250318
  Transmission Date: 20250409
  Serious: No
  Sender: NEUROCRINE BIOSCIENCES
  Company Number: US-NEUROCRINE BIOSCIENCES INC.-2025NBI02418

PATIENT
  Sex: Male

DRUGS (6)
  1. INGREZZA [Suspect]
     Active Substance: VALBENAZINE
     Indication: Huntington^s disease
     Route: 065
     Dates: start: 20250211
  2. AUSTEDO [Concomitant]
     Active Substance: DEUTETRABENAZINE
     Dates: start: 202406, end: 20250220
  3. ABILIFY [Concomitant]
     Active Substance: ARIPIPRAZOLE
  4. BUPROPION [Concomitant]
     Active Substance: BUPROPION
  5. PRISTIQ EXTENDED-RELEASE [Concomitant]
     Active Substance: DESVENLAFAXINE SUCCINATE
  6. LAMOTRIGINE [Concomitant]
     Active Substance: LAMOTRIGINE

REACTIONS (2)
  - Dyskinesia [Recovering/Resolving]
  - Dehydration [Recovering/Resolving]
